FAERS Safety Report 11250469 (Version 1)
Quarter: 2015Q3

REPORT INFORMATION
  Report Type: Spontaneous
  Country: US (occurrence: US)
  Receive Date: 20150708
  Receipt Date: 20150708
  Transmission Date: 20151125
  Serious: Yes (Other)
  Sender: FDA-Public Use
  Company Number: US-ELI_LILLY_AND_COMPANY-US201012003520

PATIENT
  Sex: Male

DRUGS (3)
  1. ALIMTA [Suspect]
     Active Substance: PEMETREXED DISODIUM
     Indication: LUNG NEOPLASM MALIGNANT
     Dosage: 1000 MG/M2, UNK
     Dates: start: 20101112
  2. CISPLATIN. [Concomitant]
     Active Substance: CISPLATIN
     Indication: LUNG NEOPLASM MALIGNANT
     Dosage: 160 MG/M2, UNK
     Dates: start: 20101112
  3. CISPLATIN. [Concomitant]
     Active Substance: CISPLATIN
     Dosage: 128 MG/M2, UNK

REACTIONS (2)
  - Eye irritation [Unknown]
  - Creatinine renal clearance decreased [Unknown]
